FAERS Safety Report 4338508-X (Version None)
Quarter: 2004Q2

REPORT INFORMATION
  Report Type: 
  Country: None (occurrence: None)
  Receive Date: 20040414
  Receipt Date: 20040406
  Transmission Date: 20050107
  Serious: Yes (Hospitalization)
  Sender: FDA-Public Use
  Company Number: JP-GLAXOSMITHKLINE-B0329139A

PATIENT
  Sex: Male

DRUGS (2)
  1. TAGAMET [Suspect]
     Dosage: 1600MG PER DAY
     Route: 048
     Dates: start: 20040331
  2. SENNOSIDE A + SENNOSIDE B [Concomitant]

REACTIONS (1)
  - DEPRESSED LEVEL OF CONSCIOUSNESS [None]
